FAERS Safety Report 18407773 (Version 1)
Quarter: 2020Q4

REPORT INFORMATION
  Report Type: Spontaneous
  Country: US (occurrence: US)
  Receive Date: 20201021
  Receipt Date: 20201021
  Transmission Date: 20210114
  Serious: Yes (Hospitalization)
  Sender: FDA-Public Use
  Company Number: US-ABBVIE-20K-163-3564353-00

PATIENT
  Sex: Male
  Weight: 86.26 kg

DRUGS (2)
  1. CREON [Suspect]
     Active Substance: PANCRELIPASE AMYLASE\PANCRELIPASE LIPASE\PANCRELIPASE PROTEASE
     Dosage: TWO TO THREE PILLS WITH A MEAL AND ONE WITH A SNACK.
     Route: 048
     Dates: start: 20200920
  2. CREON [Suspect]
     Active Substance: PANCRELIPASE AMYLASE\PANCRELIPASE LIPASE\PANCRELIPASE PROTEASE
     Indication: PANCREATIC FAILURE
     Dosage: TWO TO THREE PILLS WITH A MEAL AND ONE WITH A SNACK.
     Route: 048
     Dates: start: 202007, end: 20200919

REACTIONS (4)
  - Unevaluable event [Unknown]
  - Pancreatic disorder [Recovering/Resolving]
  - Hypophagia [Recovered/Resolved]
  - Weight decreased [Not Recovered/Not Resolved]

NARRATIVE: CASE EVENT DATE: 2020
